FAERS Safety Report 19290737 (Version 4)
Quarter: 2021Q4

REPORT INFORMATION
  Report Type: Report from Study
  Country: BE (occurrence: BE)
  Receive Date: 20210521
  Receipt Date: 20211110
  Transmission Date: 20220303
  Serious: Yes (Hospitalization)
  Sender: FDA-Public Use
  Company Number: BE-ABBVIE-20K-013-3701869-00

PATIENT
  Age: 69 Year
  Sex: Male

DRUGS (26)
  1. CARBIDOPA\LEVODOPA [Suspect]
     Active Substance: CARBIDOPA\LEVODOPA
     Indication: Parkinson^s disease
     Dosage: MD=10.5ML, CD=3.9ML/HR DURING 16HRS, ED=1ML
     Route: 050
     Dates: start: 20201207, end: 20201209
  2. CARBIDOPA\LEVODOPA [Suspect]
     Active Substance: CARBIDOPA\LEVODOPA
     Dosage: MD=10.5ML, CD=4ML/HR DURING 16HRS, ED=2ML
     Route: 050
     Dates: start: 20201209, end: 20201211
  3. CARBIDOPA\LEVODOPA [Suspect]
     Active Substance: CARBIDOPA\LEVODOPA
     Dosage: MD=10.5ML, CD=4.2ML/HR DURING 16HRS, ED=2ML
     Route: 050
     Dates: start: 20201211, end: 20201214
  4. CARBIDOPA\LEVODOPA [Suspect]
     Active Substance: CARBIDOPA\LEVODOPA
     Dosage: MD=10.5ML, CD=4.2ML/HR DURING 16HRS, ED=2.3ML
     Route: 050
     Dates: start: 20201214, end: 20201222
  5. CARBIDOPA\LEVODOPA [Suspect]
     Active Substance: CARBIDOPA\LEVODOPA
     Dosage: MD=10.3ML, CD=4.3ML/HR DURING 16HRS, ED=2.8ML
     Route: 050
     Dates: start: 20201222, end: 20210106
  6. CARBIDOPA\LEVODOPA [Suspect]
     Active Substance: CARBIDOPA\LEVODOPA
     Dosage: MD= 10.3 ML, CD= 4.6 ML/HR DURING 16HRS, ED= 3.2 ML
     Route: 050
     Dates: start: 20210106, end: 20210203
  7. CARBIDOPA\LEVODOPA [Suspect]
     Active Substance: CARBIDOPA\LEVODOPA
     Dosage: MD= 10.3 ML, CD= 4.8 ML/HR DURING 16HRS, ED= 3.2 ML
     Route: 050
     Dates: start: 20210203, end: 20210211
  8. CARBIDOPA\LEVODOPA [Suspect]
     Active Substance: CARBIDOPA\LEVODOPA
     Dosage: MD= 10.0 ML, CD= 5.0 ML/HR DURING 16HRS, ED= 3.0 ML
     Route: 050
     Dates: start: 20210211, end: 20210412
  9. CARBIDOPA\LEVODOPA [Suspect]
     Active Substance: CARBIDOPA\LEVODOPA
     Dosage: MD= 9.8 ML, CD= 5.4 ML/HR DURING 16HRS, ED= 3.2 ML
     Route: 050
     Dates: start: 20210412, end: 20210420
  10. CARBIDOPA\LEVODOPA [Suspect]
     Active Substance: CARBIDOPA\LEVODOPA
     Dosage: MD= 10.3 ML, CD= 5.6 ML/HR DURING 16HRS, ED= 4 ML
     Route: 050
     Dates: start: 20210420, end: 20210506
  11. CARBIDOPA\LEVODOPA [Suspect]
     Active Substance: CARBIDOPA\LEVODOPA
     Dosage: MD= 12.8 ML, CD= 5.6 ML/HR, ED=5.0, CND=5,6ML/H DURING 24 HOURS
     Route: 050
     Dates: start: 20210506, end: 20210518
  12. CARBIDOPA\LEVODOPA [Suspect]
     Active Substance: CARBIDOPA\LEVODOPA
     Dosage: MD 12.8 ML, CD 5.6 ML/HR, ED 3.0 ML, CND 2.0 ML/H DURING 16 HOURS
     Route: 050
     Dates: start: 20210518, end: 2021
  13. CARBIDOPA\LEVODOPA [Suspect]
     Active Substance: CARBIDOPA\LEVODOPA
     Dosage: 0.5 ML/H AT LEAST 24 HOURS
     Route: 050
     Dates: start: 202105, end: 20210613
  14. CARBIDOPA\LEVODOPA [Suspect]
     Active Substance: CARBIDOPA\LEVODOPA
     Dosage: MD 10.5 ML, CD 4.0 ML/H, ED 3.0 ML; DURING 16 HRS
     Route: 050
     Dates: start: 20210614, end: 20210625
  15. CARBIDOPA\LEVODOPA [Suspect]
     Active Substance: CARBIDOPA\LEVODOPA
     Dosage: MD 9.0 ML, DURING 16 HRS
     Route: 050
     Dates: start: 20210625, end: 20210826
  16. CARBIDOPA\LEVODOPA [Suspect]
     Active Substance: CARBIDOPA\LEVODOPA
     Dosage: MD 9.0 ML, CD 4.3ML/H, ED 3.4ML; DURING 16 HRS
     Route: 050
     Dates: start: 20210826, end: 20211103
  17. CARBIDOPA\LEVODOPA [Suspect]
     Active Substance: CARBIDOPA\LEVODOPA
     Dosage: MD 9.3 ML, CD 4.5ML/H, ED 3.4ML; DURING 16 HRS
     Route: 050
     Dates: start: 20211103
  18. APOMORPHINE [Concomitant]
     Active Substance: APOMORPHINE
     Indication: Product used for unknown indication
     Dosage: IF FREEZING, WITHOUT EFFECT OF EXTRA DOSE, PEN
  19. STALEVO [Concomitant]
     Active Substance: CARBIDOPA\ENTACAPONE\LEVODOPA
     Indication: Parkinson^s disease
     Dates: end: 20210613
  20. STALEVO [Concomitant]
     Active Substance: CARBIDOPA\ENTACAPONE\LEVODOPA
     Dosage: AT 10.00,15.00,18.00
  21. STALEVO [Concomitant]
     Active Substance: CARBIDOPA\ENTACAPONE\LEVODOPA
  22. BENSERAZIDE\LEVODOPA [Concomitant]
     Active Substance: BENSERAZIDE\LEVODOPA
     Indication: Parkinson^s disease
     Dosage: AT BEDTIME
  23. PRAMIPEXOLE [Concomitant]
     Active Substance: PRAMIPEXOLE
     Indication: Parkinson^s disease
     Dosage: RETARD
     Dates: end: 20210613
  24. PRAMIPEXOLE [Concomitant]
     Active Substance: PRAMIPEXOLE
     Dosage: 1.05 UNKNOWN
  25. STALEVO [Concomitant]
     Active Substance: CARBIDOPA\ENTACAPONE\LEVODOPA
     Indication: Parkinson^s disease
     Dates: start: 20210613
  26. STALEVO [Concomitant]
     Active Substance: CARBIDOPA\ENTACAPONE\LEVODOPA
     Dosage: 2AT 07.00, 13.00?100 UNKNOWN

REACTIONS (21)
  - General physical health deterioration [Unknown]
  - Musculoskeletal stiffness [Not Recovered/Not Resolved]
  - Muscle rigidity [Unknown]
  - Underdose [Unknown]
  - Head discomfort [Unknown]
  - Mobility decreased [Unknown]
  - Adverse food reaction [Unknown]
  - Medical device change [Unknown]
  - Decreased activity [Unknown]
  - Discomfort [Unknown]
  - Gastrointestinal disorder [Unknown]
  - Gait disturbance [Not Recovered/Not Resolved]
  - Vision blurred [Unknown]
  - Weight decreased [Unknown]
  - Decreased appetite [Unknown]
  - Freezing phenomenon [Not Recovered/Not Resolved]
  - Therapeutic product effect incomplete [Not Recovered/Not Resolved]
  - Dyskinesia [Not Recovered/Not Resolved]
  - Unevaluable event [Unknown]
  - Therapeutic product effect decreased [Unknown]
  - On and off phenomenon [Not Recovered/Not Resolved]

NARRATIVE: CASE EVENT DATE: 20201201
